FAERS Safety Report 6911818-5 (Version None)
Quarter: 2010Q3

REPORT INFORMATION
  Report Type: 
  Country: None (occurrence: None)
  Receive Date: 20100806
  Receipt Date: 20070814
  Transmission Date: 20110219
  Serious: Yes (Other)
  Sender: FDA-Public Use
  Company Number: US-PFIZER INC-2007056709

PATIENT
  Sex: Male
  Weight: 113.4 kg

DRUGS (9)
  1. DETROL LA [Suspect]
     Indication: HYPERTONIC BLADDER
     Route: 048
     Dates: start: 20070701
  2. FUROSEMIDE [Concomitant]
  3. ACTOS [Concomitant]
  4. FELODIPINE [Concomitant]
  5. FLUVASTATIN [Concomitant]
  6. CLONIDINE [Concomitant]
  7. METOPROLOL [Concomitant]
  8. ISOSORBIDE [Concomitant]
  9. SODIUM BICARBONATE [Concomitant]

REACTIONS (3)
  - ABDOMINAL SYMPTOM [None]
  - OEDEMA PERIPHERAL [None]
  - URINARY RETENTION [None]
